FAERS Safety Report 9592940 (Version 3)
Quarter: 2013Q4

REPORT INFORMATION
  Report Type: Spontaneous
  Country: US (occurrence: US)
  Receive Date: 20131004
  Receipt Date: 20131121
  Transmission Date: 20140711
  Serious: Yes (Other)
  Sender: FDA-Public Use
  Company Number: PHEH2013US020574

PATIENT
  Sex: Female

DRUGS (1)
  1. FORADIL [Suspect]
     Dosage: UNK

REACTIONS (1)
  - Respiratory distress [Unknown]
